FAERS Safety Report 16569892 (Version 1)
Quarter: 2019Q3

REPORT INFORMATION
  Report Type: Spontaneous
  Country: CA (occurrence: CA)
  Receive Date: 20190715
  Receipt Date: 20190715
  Transmission Date: 20191004
  Serious: Yes (Hospitalization, Other)
  Sender: FDA-Public Use
  Company Number: CA-TEVA-2019-CA-1075406

PATIENT
  Sex: Female

DRUGS (1)
  1. AMOXICILLIN. [Suspect]
     Active Substance: AMOXICILLIN
     Indication: PHARYNGITIS STREPTOCOCCAL
     Dosage: FORM STRENGTH:UNKNOWN
     Route: 065
     Dates: start: 20190612, end: 20190621

REACTIONS (5)
  - Haemorrhage [Unknown]
  - Haematochezia [Unknown]
  - Colitis ulcerative [Unknown]
  - Rash [Unknown]
  - Frequent bowel movements [Unknown]
